FAERS Safety Report 7236295-9 (Version None)
Quarter: 2011Q1

REPORT INFORMATION
  Report Type: 
  Country: None (occurrence: None)
  Receive Date: 20110120
  Receipt Date: 20110110
  Transmission Date: 20110831
  Serious: Yes (Hospitalization, Other)
  Sender: FDA-Public Use
  Company Number: US-ELI_LILLY_AND_COMPANY-US201003000192

PATIENT
  Sex: Female
  Weight: 63.719 kg

DRUGS (15)
  1. FORTEO [Suspect]
     Indication: OSTEOPOROSIS
     Dosage: 20 UG, DAILY (1/D)
     Dates: start: 20090201
  2. SPIRIVA [Concomitant]
  3. DIOVAN [Concomitant]
     Dosage: 150 MG, UNK
  4. OMEPRAZOLE [Concomitant]
     Indication: GASTROOESOPHAGEAL REFLUX DISEASE
  5. SIMVASTATIN [Concomitant]
     Indication: BLOOD CHOLESTEROL
  6. METHOCARBAMOL [Concomitant]
     Dosage: 750 MG, UNK
  7. ASPIRIN [Concomitant]
     Dosage: 325 MG, UNK
  8. ADVAIR [Concomitant]
  9. PREDNISONE [Concomitant]
     Indication: CHRONIC OBSTRUCTIVE PULMONARY DISEASE
  10. VITAMIN D [Concomitant]
  11. HYDROCHLORZIDE [Concomitant]
     Dosage: UNK, UNK
  12. PROPOXYPHENE [Concomitant]
     Indication: BACK PAIN
  13. ASPIRIN [Concomitant]
     Dosage: 81 MG, UNK
  14. LEXAPRO [Concomitant]
     Indication: DEPRESSION
     Dosage: 10 MG, UNK
  15. FORTEO [Suspect]
     Dosage: 20 UG, DAILY (1/D)

REACTIONS (30)
  - ASTHENIA [None]
  - MASS [None]
  - MUSCULOSKELETAL CHEST PAIN [None]
  - LACUNAR INFARCTION [None]
  - CONTUSION [None]
  - VITAMIN D DECREASED [None]
  - HEADACHE [None]
  - MOVEMENT DISORDER [None]
  - HEAD INJURY [None]
  - URTICARIA [None]
  - DYSPHONIA [None]
  - CHOKING SENSATION [None]
  - INJECTION SITE PAIN [None]
  - MUSCLE SPASMS [None]
  - BONE DISORDER [None]
  - ARTHRALGIA [None]
  - ANAEMIA [None]
  - LIMB DISCOMFORT [None]
  - DYSPHAGIA [None]
  - BALANCE DISORDER [None]
  - DRUG DOSE OMISSION [None]
  - WRIST FRACTURE [None]
  - SURGERY [None]
  - MEMORY IMPAIRMENT [None]
  - WRIST DEFORMITY [None]
  - FATIGUE [None]
  - FEELING ABNORMAL [None]
  - HAEMATOCHEZIA [None]
  - FALL [None]
  - DRY MOUTH [None]
